FAERS Safety Report 9667794 (Version 1)
Quarter: 2013Q4

REPORT INFORMATION
  Report Type: Spontaneous
  Country: US (occurrence: None)
  Receive Date: 20131101
  Receipt Date: 20131101
  Transmission Date: 20140711
  Serious: Yes (Hospitalization)
  Sender: FDA-Public Use
  Company Number: ACO_34098_2013

PATIENT
  Age: 33 Year
  Sex: Female
  Weight: 67.1 kg

DRUGS (3)
  1. AMPRYA (DALFAMPRIDINE) TABLET, 10MG [Suspect]
     Indication: GAIT DISTURBANCE
     Route: 048
     Dates: start: 201212, end: 20130101
  2. AVONEX (INTERFERON BETA-1A) [Concomitant]
  3. BACLOFEN (BACLOFEN) [Concomitant]

REACTIONS (5)
  - Musculoskeletal disorder [None]
  - Fall [None]
  - Influenza like illness [None]
  - Balance disorder [None]
  - Multiple sclerosis relapse [None]
